FAERS Safety Report 22216033 (Version 1)
Quarter: 2023Q2

REPORT INFORMATION
  Report Type: Spontaneous
  Country: GB (occurrence: GB)
  Receive Date: 20230417
  Receipt Date: 20230417
  Transmission Date: 20230722
  Serious: Yes (Other)
  Sender: FDA-Public Use
  Company Number: GB-MHRA-MED-202303290111451320-BWLCF

PATIENT
  Sex: Female

DRUGS (2)
  1. MEROPENEM [Suspect]
     Active Substance: MEROPENEM
     Indication: Product used for unknown indication
     Dosage: 2 GRAM, TWO TIMES A DAY
     Route: 065
     Dates: start: 20230328, end: 20230328
  2. VABORBACTAM [Suspect]
     Active Substance: VABORBACTAM
     Indication: Product used for unknown indication
     Dosage: 2 GRAM, TWO TIMES A DAY
     Route: 065
     Dates: start: 20230328, end: 20230328

REACTIONS (7)
  - Aphasia [Not Recovered/Not Resolved]
  - Confusional state [Not Recovered/Not Resolved]
  - Dysarthria [Not Recovered/Not Resolved]
  - Headache [Not Recovered/Not Resolved]
  - Hypertension [Recovering/Resolving]
  - Seizure [Recovered/Resolved]
  - Vision blurred [Recovering/Resolving]

NARRATIVE: CASE EVENT DATE: 20230328
